FAERS Safety Report 13537458 (Version 2)
Quarter: 2017Q2

REPORT INFORMATION
  Report Type: Spontaneous
  Country: IN (occurrence: IN)
  Receive Date: 20170511
  Receipt Date: 20170515
  Transmission Date: 20170830
  Serious: Yes (Hospitalization)
  Sender: FDA-Public Use
  Company Number: IN-JNJFOC-20170505083

PATIENT
  Age: 10 Year
  Sex: Female

DRUGS (9)
  1. CARNISURE [Concomitant]
     Indication: ENCEPHALITIS AUTOIMMUNE
     Route: 065
  2. LEVIPIL [Concomitant]
     Active Substance: LEVETIRACETAM
     Indication: ENCEPHALITIS AUTOIMMUNE
     Route: 065
     Dates: start: 201603
  3. CLONAZEPAM. [Concomitant]
     Active Substance: CLONAZEPAM
     Indication: ENCEPHALITIS AUTOIMMUNE
     Route: 065
  4. WYSOLONE [Concomitant]
     Active Substance: PREDNISOLONE
     Indication: ENCEPHALITIS AUTOIMMUNE
     Route: 065
  5. OLANZAPINE. [Suspect]
     Active Substance: OLANZAPINE
     Indication: ENCEPHALITIS AUTOIMMUNE
     Dosage: IN MORNING
     Route: 065
  6. PAN [Concomitant]
     Route: 065
  7. OLANZAPINE. [Suspect]
     Active Substance: OLANZAPINE
     Indication: ENCEPHALITIS AUTOIMMUNE
     Dosage: NIGHT
     Route: 065
  8. UDILIV [Concomitant]
     Indication: ENCEPHALITIS AUTOIMMUNE
     Route: 065
  9. HALOPERIDOL. [Suspect]
     Active Substance: HALOPERIDOL
     Indication: ENCEPHALITIS AUTOIMMUNE
     Route: 065

REACTIONS (5)
  - Product use in unapproved indication [Unknown]
  - Off label use [Unknown]
  - Blood creatine phosphokinase increased [Unknown]
  - Extrapyramidal disorder [Unknown]
  - Liver function test abnormal [Unknown]
